FAERS Safety Report 12309195 (Version 1)
Quarter: 2016Q2

REPORT INFORMATION
  Report Type: Spontaneous
  Country: US (occurrence: None)
  Receive Date: 20160426
  Receipt Date: 20160426
  Transmission Date: 20160815
  Serious: Yes (Hospitalization)
  Sender: FDA-Public Use
  Company Number: None

PATIENT
  Age: 70 Year
  Sex: Male
  Weight: 114 kg

DRUGS (13)
  1. NORCO [Concomitant]
     Active Substance: ACETAMINOPHEN\HYDROCODONE BITARTRATE
  2. ACYCLOVIR. [Concomitant]
     Active Substance: ACYCLOVIR
  3. OMEGA 3 [Concomitant]
     Active Substance: OMEGA-3 FATTY ACIDS
  4. FINASTERIDE. [Concomitant]
     Active Substance: FINASTERIDE
  5. MULTIVITAMIN [Concomitant]
     Active Substance: VITAMINS
  6. BACTRIM [Concomitant]
     Active Substance: SULFAMETHOXAZOLE\TRIMETHOPRIM
  7. LISINOPRIL. [Concomitant]
     Active Substance: LISINOPRIL
  8. METOPROLOL. [Concomitant]
     Active Substance: METOPROLOL
  9. ALLOPURINOL. [Concomitant]
     Active Substance: ALLOPURINOL
  10. GAZYVA [Suspect]
     Active Substance: OBINUTUZUMAB
     Indication: CHRONIC LYMPHOCYTIC LEUKAEMIA
     Dosage: DAY 1 GIVE 100 MG   INTRAVENOUS (NOT OTHERWISE SPECIFIED)
     Route: 042
  11. RAPAFLO [Concomitant]
     Active Substance: SILODOSIN
  12. LIPITOR [Concomitant]
     Active Substance: ATORVASTATIN CALCIUM
  13. COUMADIN [Concomitant]
     Active Substance: WARFARIN SODIUM

REACTIONS (11)
  - Paraesthesia [None]
  - Tachycardia [None]
  - Breath sounds abnormal [None]
  - Throat tightness [None]
  - Dizziness [None]
  - Oxygen saturation decreased [None]
  - Infusion related reaction [None]
  - Dry skin [None]
  - Cough [None]
  - Dysphonia [None]
  - Erythema [None]

NARRATIVE: CASE EVENT DATE: 20160419
